FAERS Safety Report 4308292-4 (Version None)
Quarter: 2004Q1

REPORT INFORMATION
  Report Type: 
  Country: None (occurrence: None)
  Receive Date: 20040301
  Receipt Date: 20031111
  Transmission Date: 20041129
  Serious: No
  Sender: FDA-Public Use
  Company Number: US-BRISTOL-MYERS SQUIBB COMPANY-12432720

PATIENT
  Age: 61 Year
  Sex: Female
  Weight: 77 kg

DRUGS (12)
  1. GLUCOPHAGE [Suspect]
     Indication: BLOOD GLUCOSE ABNORMAL
     Dates: start: 20031024
  2. GLUCOVANCE [Suspect]
  3. GLYBURIDE [Suspect]
     Indication: BLOOD GLUCOSE ABNORMAL
     Route: 048
     Dates: start: 20030101, end: 20031023
  4. SYNTHROID [Concomitant]
  5. PLAVIX [Concomitant]
  6. ACIPHEX [Concomitant]
  7. MULTIVITAMIN WITH MINERALS [Concomitant]
  8. PSYLLIUM HUSK [Concomitant]
  9. CHROMIUM PICOLINATE [Concomitant]
  10. ASCORBIC ACID + BIOFLAVONOIDS [Concomitant]
  11. COENZYME Q10 [Concomitant]
  12. ATENOLOL [Concomitant]

REACTIONS (8)
  - BLOOD GLUCOSE INCREASED [None]
  - DIZZINESS [None]
  - HEART RATE INCREASED [None]
  - MUSCLE CRAMP [None]
  - MUSCLE SPASMS [None]
  - MUSCULAR WEAKNESS [None]
  - PAIN IN EXTREMITY [None]
  - PERIARTHRITIS [None]
